FAERS Safety Report 5488127-7 (Version None)
Quarter: 2007Q4

REPORT INFORMATION
  Report Type: 
  Country: None (occurrence: None)
  Receive Date: 20071001
  Receipt Date: 20060927
  Transmission Date: 20080405
  Serious: Yes (Other)
  Sender: FDA-Public Use
  Company Number: 200615619BWH

PATIENT
  Age: 77 Year
  Sex: Female

DRUGS (11)
  1. CIPRO [Suspect]
     Indication: PYREXIA
     Dosage: ORAL
     Route: 048
  2. ISOSORB [Concomitant]
  3. VYTORIN [Concomitant]
  4. AMITRIPTYLINE [Concomitant]
  5. ALTACE [Concomitant]
  6. METHYLPREDNISOLONE [Concomitant]
  7. ACTONEL [Concomitant]
  8. PREVACID [Concomitant]
  9. ASPIRIN [Concomitant]
  10. COLCHICINE [Concomitant]
  11. GEMCITABINE [Concomitant]

REACTIONS (1)
  - MENTAL STATUS CHANGES [None]
